FAERS Safety Report 5371858-7 (Version None)
Quarter: 2007Q2

REPORT INFORMATION
  Report Type: 
  Country: None (occurrence: None)
  Receive Date: 20070627
  Receipt Date: 20070614
  Transmission Date: 20071010
  Serious: Yes (Other)
  Sender: FDA-Public Use
  Company Number: FR-JNJFOC-20070605081

PATIENT
  Sex: Male
  Weight: 3.36 kg

DRUGS (6)
  1. DURAGESIC-100 [Suspect]
     Indication: DRUG EXPOSURE DURING PREGNANCY
  2. LAROXYL [Concomitant]
     Indication: DRUG EXPOSURE DURING PREGNANCY
  3. ZELITREX [Concomitant]
     Indication: DRUG EXPOSURE DURING PREGNANCY
  4. CORTANCYL [Concomitant]
     Indication: DRUG EXPOSURE DURING PREGNANCY
  5. OXYNORM [Concomitant]
     Indication: DRUG EXPOSURE DURING PREGNANCY
  6. LEVOTHYROXINE SODIUM [Concomitant]
     Indication: DRUG EXPOSURE DURING PREGNANCY

REACTIONS (1)
  - FOETAL DISTRESS SYNDROME [None]
